FAERS Safety Report 6754776-9 (Version None)
Quarter: 2010Q2

REPORT INFORMATION
  Report Type: 
  Country: None (occurrence: None)
  Receive Date: 20100603
  Receipt Date: 20100524
  Transmission Date: 20101027
  Serious: Yes (Hospitalization)
  Sender: FDA-Public Use
  Company Number: US-BAXTER-2010BH009877

PATIENT
  Age: 74 Year
  Sex: Male

DRUGS (1)
  1. DIANEAL [Suspect]
     Indication: RENAL FAILURE CHRONIC
     Route: 033
     Dates: end: 20100401

REACTIONS (9)
  - CATHETER SITE INFECTION [None]
  - DECREASED APPETITE [None]
  - DEVICE RELATED INFECTION [None]
  - EATING DISORDER [None]
  - HAEMODIALYSIS [None]
  - INFUSION SITE EXTRAVASATION [None]
  - JOINT SWELLING [None]
  - STAPHYLOCOCCAL INFECTION [None]
  - VOMITING [None]
